FAERS Safety Report 20099272 (Version 3)
Quarter: 2022Q4

REPORT INFORMATION
  Report Type: Spontaneous
  Country: GR (occurrence: GR)
  Receive Date: 20211122
  Receipt Date: 20221212
  Transmission Date: 20230113
  Serious: Yes (Other)
  Sender: FDA-Public Use
  Company Number: GR-DEM-004294

PATIENT
  Age: 85 Year
  Sex: Female

DRUGS (8)
  1. ATROVENT [Suspect]
     Active Substance: IPRATROPIUM BROMIDE
     Indication: Chronic obstructive pulmonary disease
     Route: 055
     Dates: start: 201910, end: 2021
  2. ATROVENT [Suspect]
     Active Substance: IPRATROPIUM BROMIDE
     Dosage: ONE AMPOULE
     Route: 055
     Dates: start: 2021
  3. BUDESONIDE [Suspect]
     Active Substance: BUDESONIDE
     Indication: Chronic obstructive pulmonary disease
     Dosage: 1 IN THE MORNING AND 1 IN THE EVENING
     Route: 055
     Dates: start: 201910
  4. IPRATROPIUM BROMIDE [Suspect]
     Active Substance: IPRATROPIUM BROMIDE
     Indication: Chronic obstructive pulmonary disease
     Dosage: 250 MG/2 ML,
     Route: 055
     Dates: start: 2021
  5. BISOPROLOL FUMARATE [Concomitant]
     Active Substance: BISOPROLOL FUMARATE
     Indication: Product used for unknown indication
     Dosage: HALF A TABLET IN THE MORNING AND HALF IN THE EVENING
     Route: 048
     Dates: end: 2022
  6. AMILORIDE HYDROCHLORIDE\FUROSEMIDE [Concomitant]
     Active Substance: AMILORIDE HYDROCHLORIDE\FUROSEMIDE
     Indication: Hypertension
     Dosage: 40 MG/5 MG, 1 TABLET IN THE MORNING?UNIT DOSE:- 1 DOSAGE FORM
     Route: 048
     Dates: end: 2022
  7. AMILORIDE HYDROCHLORIDE\FUROSEMIDE [Concomitant]
     Active Substance: AMILORIDE HYDROCHLORIDE\FUROSEMIDE
     Dosage: 40 MG/5 MG, 1/2 A TABLET TWICE DAILY (IN THE MORNING AND IN THE EVENING)
     Route: 048
  8. ELIQUIS [Concomitant]
     Active Substance: APIXABAN
     Indication: Prophylaxis
     Route: 048

REACTIONS (5)
  - Myoclonus [Recovered/Resolved]
  - Neuralgia [Recovered/Resolved]
  - Dizziness [Not Recovered/Not Resolved]
  - Vertigo [Not Recovered/Not Resolved]
  - Blood pressure increased [Recovered/Resolved]

NARRATIVE: CASE EVENT DATE: 20190101
